FAERS Safety Report 9634000 (Version 3)
Quarter: 2013Q4

REPORT INFORMATION
  Report Type: Spontaneous
  Country: US (occurrence: US)
  Receive Date: 20131021
  Receipt Date: 20131209
  Transmission Date: 20140711
  Serious: No
  Sender: FDA-Public Use
  Company Number: US-009507513-1310USA009014

PATIENT
  Age: 26 Year
  Sex: Female
  Weight: 52.61 kg

DRUGS (1)
  1. NEXPLANON [Suspect]
     Dosage: 1 ROD PER THREE YEARS, LEFT ARM
     Route: 059
     Dates: start: 20131017

REACTIONS (4)
  - Device difficult to use [Recovered/Resolved]
  - Device deployment issue [Recovered/Resolved]
  - Product quality issue [Unknown]
  - No adverse event [Unknown]
